FAERS Safety Report 17009773 (Version 1)
Quarter: 2019Q4

REPORT INFORMATION
  Report Type: Spontaneous
  Country: US (occurrence: US)
  Receive Date: 20190930
  Receipt Date: 20190930
  Transmission Date: 20200122
  Serious: Yes (Hospitalization)
  Sender: FDA-Public Use
  Company Number: None

PATIENT
  Sex: Female

DRUGS (1)
  1. BOSULIF [Suspect]
     Active Substance: BOSUTINIB MONOHYDRATE
     Indication: SUICIDE ATTEMPT
     Route: 048
     Dates: start: 20190819

REACTIONS (3)
  - Cough [None]
  - Fatigue [None]
  - Suicide attempt [None]
